FAERS Safety Report 25569673 (Version 1)
Quarter: 2025Q3

REPORT INFORMATION
  Report Type: Report from Study
  Country: US (occurrence: US)
  Receive Date: 20250717
  Receipt Date: 20250717
  Transmission Date: 20251021
  Serious: Yes (Other)
  Sender: BIOGEN
  Company Number: US-BIOGEN-2025BI01316896

PATIENT
  Age: 33 Year
  Sex: Female

DRUGS (1)
  1. TYSABRI [Suspect]
     Active Substance: NATALIZUMAB
     Indication: Multiple sclerosis
     Route: 050
     Dates: start: 20250626, end: 20250626

REACTIONS (3)
  - Hypersensitivity [Unknown]
  - Influenza like illness [Unknown]
  - Aphonia [Unknown]

NARRATIVE: CASE EVENT DATE: 20250626
